FAERS Safety Report 6318669-3 (Version None)
Quarter: 2009Q3

REPORT INFORMATION
  Report Type: 
  Country: None (occurrence: None)
  Receive Date: 20090821
  Receipt Date: 20090813
  Transmission Date: 20100115
  Serious: Yes (Other)
  Sender: FDA-Public Use
  Company Number: US-AMGEN-QUU358274

PATIENT
  Sex: Male
  Weight: 91 kg

DRUGS (14)
  1. EPOGEN [Suspect]
     Indication: DIALYSIS
     Route: 042
     Dates: start: 20080701
  2. METOPROLOL [Concomitant]
     Route: 048
     Dates: start: 20090131
  3. NIFEDIPINE [Concomitant]
     Route: 048
     Dates: start: 20080703
  4. HYDRALAZINE HCL [Concomitant]
     Route: 048
     Dates: start: 20080703
  5. SIMVASTATIN [Concomitant]
     Route: 048
     Dates: start: 20080703
  6. UNSPECIFIED OPHTHALMIC PREPARATION [Concomitant]
     Route: 031
     Dates: start: 20080703
  7. DIATX [Concomitant]
     Route: 048
     Dates: start: 20080821
  8. VIAGRA [Concomitant]
     Route: 048
     Dates: start: 20090131
  9. LASIX [Concomitant]
     Route: 048
     Dates: start: 20090131
  10. HUMALOG [Concomitant]
     Route: 058
  11. LANTUS [Concomitant]
  12. IMDUR [Concomitant]
  13. RENAGEL [Concomitant]
     Route: 048
  14. OMEPRAZOLE [Concomitant]

REACTIONS (3)
  - APLASIA PURE RED CELL [None]
  - PROCEDURAL HYPERTENSION [None]
  - THERAPEUTIC RESPONSE DECREASED [None]
